FAERS Safety Report 13143823 (Version 2)
Quarter: 2017Q1

REPORT INFORMATION
  Report Type: Report from Study
  Country: US (occurrence: US)
  Receive Date: 20170124
  Receipt Date: 20170222
  Transmission Date: 20170428
  Serious: Yes (Hospitalization, Other)
  Sender: FDA-Public Use
  Company Number: US-JNJFOC-20170121574

PATIENT
  Age: 81 Year
  Sex: Female

DRUGS (2)
  1. IMBRUVICA [Suspect]
     Active Substance: IBRUTINIB
     Indication: CHRONIC LYMPHOCYTIC LEUKAEMIA
     Route: 048
  2. COUMADIN [Suspect]
     Active Substance: WARFARIN SODIUM
     Indication: PRODUCT USED FOR UNKNOWN INDICATION
     Route: 065

REACTIONS (9)
  - Gastrointestinal haemorrhage [Unknown]
  - Prothrombin time prolonged [Unknown]
  - Contusion [Not Recovered/Not Resolved]
  - Anaemia [Not Recovered/Not Resolved]
  - International normalised ratio increased [Unknown]
  - Malaise [Recovering/Resolving]
  - Incorrect dose administered [Unknown]
  - Gastrointestinal arteriovenous malformation [Unknown]
  - Off label use [Unknown]

NARRATIVE: CASE EVENT DATE: 201701
